FAERS Safety Report 12819264 (Version 1)
Quarter: 2016Q4

REPORT INFORMATION
  Report Type: Report from Study
  Country: US (occurrence: US)
  Receive Date: 20161006
  Receipt Date: 20161006
  Transmission Date: 20170207
  Serious: Yes (Other)
  Sender: FDA-Public Use
  Company Number: US-AMGEN-USASL2015138511

PATIENT
  Age: 84 Year
  Sex: Female

DRUGS (1)
  1. PROLIA [Suspect]
     Active Substance: DENOSUMAB
     Indication: PRODUCT USED FOR UNKNOWN INDICATION
     Dosage: UNK, UNK
     Route: 065
     Dates: start: 201412

REACTIONS (10)
  - Urticaria [Not Recovered/Not Resolved]
  - Pruritus [Unknown]
  - Rash [Not Recovered/Not Resolved]
  - Erythema [Unknown]
  - Skin discolouration [Unknown]
  - Hot flush [Unknown]
  - Photosensitivity reaction [Unknown]
  - Feeling hot [Unknown]
  - Flushing [Unknown]
  - Burning sensation [Unknown]

NARRATIVE: CASE EVENT DATE: 201412
